FAERS Safety Report 9124363 (Version 3)
Quarter: 2013Q1

REPORT INFORMATION
  Report Type: Spontaneous
  Country: FR (occurrence: FR)
  Receive Date: 20130227
  Receipt Date: 20130327
  Transmission Date: 20140127
  Serious: Yes (Death, Hospitalization, Other)
  Sender: FDA-Public Use
  Company Number: FR-BRISTOL-MYERS SQUIBB COMPANY-17387671

PATIENT
  Age: 74 Year
  Sex: Male
  Weight: 75 kg

DRUGS (5)
  1. NULOJIX [Suspect]
     Indication: RENAL TRANSPLANT
     Dosage: 14AUG12 350 MG; 20AUG12 350 MG; 11SEP12 300 MG; 25SEP12 300 MG. INTERRUPTED 11NOV12 TO 15DEC12
     Dates: start: 20120731, end: 2012
  2. TACROLIMUS [Suspect]
     Dosage: DECREASED TO 5 MG
     Dates: end: 20120830
  3. CELLCEPT [Suspect]
     Dates: end: 201212
  4. CORTICOSTEROID [Suspect]
  5. LANTUS [Concomitant]

REACTIONS (13)
  - Renal failure [Fatal]
  - Leukoencephalopathy [Unknown]
  - Transplant rejection [Unknown]
  - Renal tubular necrosis [Unknown]
  - Convulsion [Unknown]
  - Lung infection [Recovered/Resolved]
  - Clostridium difficile colitis [Not Recovered/Not Resolved]
  - Prostatitis Escherichia coli [Unknown]
  - Dehydration [Unknown]
  - General physical health deterioration [Unknown]
  - Hypoglycaemia [Unknown]
  - Malnutrition [Unknown]
  - Eschar [Unknown]
